FAERS Safety Report 8696546 (Version 2)
Quarter: 2012Q4

REPORT INFORMATION
  Report Type: 
  Country: FR (occurrence: FR)
  Receive Date: 20120801
  Receipt Date: 20121126
  Transmission Date: 20130627
  Serious: Yes (Hospitalization)
  Sender: FDA-Public Use
  Company Number: FR-BRISTOL-MYERS SQUIBB COMPANY-16793853

PATIENT
  Age: 61 Year
  Sex: Female

DRUGS (14)
  1. ABILIFY [Suspect]
     Route: 048
  2. ARANESP [Suspect]
     Route: 058
  3. HALDOL [Suspect]
     Route: 048
  4. SEROQUEL [Suspect]
     Route: 048
  5. NOVONORM [Concomitant]
  6. RENAGEL [Concomitant]
  7. SODIUM BICARBONATE [Concomitant]
  8. MOPRAL [Concomitant]
  9. APROVEL [Concomitant]
  10. AMLOR [Concomitant]
  11. KARDEGIC [Concomitant]
  12. LASILIX [Concomitant]
  13. SPIRIVA [Concomitant]
  14. BRONCHODUAL [Concomitant]

REACTIONS (1)
  - Pulmonary embolism [Recovered/Resolved]
